FAERS Safety Report 17108467 (Version 1)
Quarter: 2019Q4

REPORT INFORMATION
  Report Type: Spontaneous
  Country: US (occurrence: US)
  Receive Date: 20191203
  Receipt Date: 20191203
  Transmission Date: 20200122
  Serious: No
  Sender: FDA-Public Use
  Company Number: US-US WORLDMEDS, LLC-USW201908-001561

PATIENT

DRUGS (4)
  1. LUCEMYRA [Suspect]
     Active Substance: LOFEXIDINE
     Dosage: ONE TABLETS
     Dates: start: 20190808
  2. METHADONE [Concomitant]
     Active Substance: METHADONE HYDROCHLORIDE
  3. LUCEMYRA [Suspect]
     Active Substance: LOFEXIDINE
     Dosage: TWO TABLETS
     Dates: start: 20190808
  4. LUCEMYRA [Suspect]
     Active Substance: LOFEXIDINE
     Indication: PRODUCT USED FOR UNKNOWN INDICATION
     Dosage: THREE TABLETS
     Dates: start: 20190808

REACTIONS (2)
  - Withdrawal syndrome [Unknown]
  - Dizziness [Unknown]

NARRATIVE: CASE EVENT DATE: 20190817
